FAERS Safety Report 22069799 (Version 1)
Quarter: 2023Q1

REPORT INFORMATION
  Report Type: Spontaneous
  Country: BE (occurrence: BE)
  Receive Date: 20230307
  Receipt Date: 20230307
  Transmission Date: 20230418
  Serious: Yes (Other)
  Sender: FDA-Public Use
  Company Number: BE-CHEPLA-2023002951

PATIENT
  Age: 66 Year
  Sex: Female

DRUGS (1)
  1. HYDROXYUREA [Suspect]
     Active Substance: HYDROXYUREA
     Indication: Chronic leukaemia

REACTIONS (2)
  - Cytopenia [Unknown]
  - Product use in unapproved indication [Recovered/Resolved]
